FAERS Safety Report 16804565 (Version 1)
Quarter: 2019Q3

REPORT INFORMATION
  Report Type: Spontaneous
  Country: QA (occurrence: QA)
  Receive Date: 20190913
  Receipt Date: 20190913
  Transmission Date: 20191005
  Serious: Yes (Hospitalization)
  Sender: FDA-Public Use
  Company Number: QA-ENDO PHARMACEUTICALS INC-2019-107815

PATIENT
  Age: 24 Year
  Sex: Female

DRUGS (3)
  1. CAFFEINE. [Suspect]
     Active Substance: CAFFEINE
     Indication: WEIGHT DECREASED
     Dosage: UNK UNKNOWN, UNKNOWN
     Route: 065
  2. TORSEMIDE. [Suspect]
     Active Substance: TORSEMIDE
     Indication: PRODUCT USED FOR UNKNOWN INDICATION
     Dosage: UNK UNKNOWN, UNKNOWN
     Route: 065
  3. MELOXICAM. [Concomitant]
     Active Substance: MELOXICAM
     Indication: DYSMENORRHOEA
     Dosage: UNK UNKNOWN, UNKNOWN
     Route: 065

REACTIONS (10)
  - Potentiating drug interaction [Unknown]
  - Multiple organ dysfunction syndrome [Unknown]
  - Product appearance confusion [Unknown]
  - Brain injury [Unknown]
  - Hypocalcaemia [None]
  - Hyponatraemia [Unknown]
  - Hypokalaemia [Unknown]
  - Cardiac arrest [Unknown]
  - Suspected suicide attempt [Unknown]
  - Accidental exposure to product [Unknown]
